FAERS Safety Report 6984158 (Version 2)
Quarter: 2014Q1

REPORT INFORMATION
  Report Type: Spontaneous
  Country: US (occurrence: US)
  Receive Date: 20090501
  Receipt Date: 20140310
  Transmission Date: 20141002
  Serious: Yes (Death, Hospitalization, Other)
  Sender: FDA-Public Use
  Company Number: US-ALEXION-A200700061

PATIENT
  Age: 45 Year
  Sex: Female

DRUGS (6)
  1. SOLIRIS [Suspect]
     Indication: PAROXYSMAL NOCTURNAL HAEMOGLOBINURIA
     Dosage: 600 MG, QW
     Route: 042
     Dates: start: 20070817, end: 20070907
  2. SOLIRIS [Suspect]
     Dosage: 900 MG, Q2W
     Route: 042
     Dates: start: 20070914, end: 20080620
  3. LISINOPRIL [Concomitant]
     Indication: HYPERTENSION
     Route: 048
  4. ZOCOR [Concomitant]
     Indication: BLOOD CHOLESTEROL INCREASED
     Route: 048
  5. FOLIC ACID [Concomitant]
     Route: 048
  6. ZOLOFT /01011401/ [Concomitant]
     Route: 048

REACTIONS (19)
  - Paroxysmal nocturnal haemoglobinuria [Fatal]
  - Aplastic anaemia [Fatal]
  - Pneumonia viral [Recovered/Resolved]
  - Dyspnoea [Unknown]
  - Haemolytic anaemia [Unknown]
  - Vaginal haemorrhage [Unknown]
  - Unevaluable event [Unknown]
  - Blood product transfusion dependent [Not Recovered/Not Resolved]
  - Thrombocytopenia [Recovered/Resolved]
  - Chest pain [Recovered/Resolved]
  - Respiratory tract infection [Not Recovered/Not Resolved]
  - Haemoglobin decreased [Unknown]
  - White blood cell count decreased [Recovering/Resolving]
  - Haematocrit decreased [Recovering/Resolving]
  - Blood lactate dehydrogenase increased [Unknown]
  - Dyspnoea [Not Recovered/Not Resolved]
  - Pain in extremity [Recovered/Resolved]
  - Asthenia [Not Recovered/Not Resolved]
  - Fatigue [Not Recovered/Not Resolved]
